FAERS Safety Report 8540928-4 (Version None)
Quarter: 2012Q3

REPORT INFORMATION
  Report Type: 
  Country: None (occurrence: None)
  Receive Date: 20120726
  Receipt Date: 20110809
  Transmission Date: 20120928
  Serious: No
  Sender: FDA-Public Use
  Company Number: US-ASTRAZENECA-2011SE47799

PATIENT
  Age: 67 Year
  Sex: Female
  Weight: 79.4 kg

DRUGS (8)
  1. SEROQUEL [Suspect]
     Dosage: ONE AND HALF TABLET DAILY
     Route: 048
  2. TRAMADOL HYDROCHLORIDE [Concomitant]
  3. OMEPRAZOLE [Concomitant]
  4. CLONAZEPAM [Concomitant]
  5. MIRALAX [Concomitant]
  6. HYDROCODONE BITARTRATE [Concomitant]
  7. SEROQUEL [Suspect]
     Route: 048
     Dates: start: 20090101
  8. TYLENOL [Concomitant]

REACTIONS (4)
  - WEIGHT INCREASED [None]
  - INCORRECT DOSE ADMINISTERED [None]
  - DEPRESSION [None]
  - DRUG DOSE OMISSION [None]
